FAERS Safety Report 19274859 (Version 1)
Quarter: 2021Q2

REPORT INFORMATION
  Report Type: Spontaneous
  Country: US (occurrence: US)
  Receive Date: 20210519
  Receipt Date: 20210519
  Transmission Date: 20210717
  Serious: No
  Sender: FDA-Public Use
  Company Number: None

PATIENT
  Age: 74 Year
  Sex: Female

DRUGS (9)
  1. ALLERGY 24HOUR INDOOR/OUTDOOR [Concomitant]
  2. MORPHINE SULFATE ER [Concomitant]
     Active Substance: MORPHINE SULFATE
  3. CAPECITABINE 500 MG TABLET [Suspect]
     Active Substance: CAPECITABINE
  4. ANASTROZOLE. [Concomitant]
     Active Substance: ANASTROZOLE
  5. DICYCLOMINE HCL [Concomitant]
     Active Substance: DICYCLOMINE HYDROCHLORIDE
  6. HYDROCODONE?ACETAMINOPHEN [Concomitant]
     Active Substance: ACETAMINOPHEN\HYDROCODONE
  7. LYRICA [Concomitant]
     Active Substance: PREGABALIN
  8. SOMA [Concomitant]
     Active Substance: CARISOPRODOL
  9. HERCEPTIN [Concomitant]
     Active Substance: TRASTUZUMAB

REACTIONS (1)
  - Disease progression [None]

NARRATIVE: CASE EVENT DATE: 20210519
